FAERS Safety Report 8184197-6 (Version None)
Quarter: 2012Q1

REPORT INFORMATION
  Report Type: 
  Country: None (occurrence: None)
  Receive Date: 20120301
  Receipt Date: 20120216
  Transmission Date: 20120608
  Serious: Yes (Other)
  Sender: FDA-Public Use
  Company Number: TPA2012A00872

PATIENT
  Age: 8 Decade

DRUGS (1)
  1. PREVACID [Suspect]
     Indication: BARRETT'S OESOPHAGUS
     Dosage: 30 MG
     Dates: start: 20020101, end: 20090101

REACTIONS (4)
  - COLON CANCER [None]
  - HAEMORRHAGIC ANAEMIA [None]
  - FOREIGN BODY [None]
  - LARGE INTESTINAL HAEMORRHAGE [None]
